FAERS Safety Report 19006821 (Version 1)
Quarter: 2021Q1

REPORT INFORMATION
  Report Type: Spontaneous
  Country: GB (occurrence: GB)
  Receive Date: 20210315
  Receipt Date: 20210315
  Transmission Date: 20210420
  Serious: Yes (Other)
  Sender: FDA-Public Use
  Company Number: GB-SUN PHARMACEUTICAL INDUSTRIES LTD-2021RR-285576

PATIENT
  Age: 49 Year
  Sex: Female

DRUGS (31)
  1. TRASTUZUMAB. [Suspect]
     Active Substance: TRASTUZUMAB
     Dosage: 400 MILLIGRAM, 1 DOSE/3 WEEKS
     Route: 042
     Dates: start: 20151120, end: 20161104
  2. DEXAMETHASONE. [Concomitant]
     Active Substance: DEXAMETHASONE
     Dosage: 8 MILLIGRAM
     Route: 048
     Dates: start: 20151210, end: 20160222
  3. DEXAMETHASONE. [Concomitant]
     Active Substance: DEXAMETHASONE
     Dosage: 4 MILLIGRAM, BID
     Route: 048
     Dates: start: 20170809, end: 20170919
  4. GLYCOPYRRONIUM [Concomitant]
     Active Substance: GLYCOPYRRONIUM
     Indication: PRODUCT USED FOR UNKNOWN INDICATION
     Dosage: 400 MICROGRAM, UNK
     Route: 058
     Dates: start: 20170919, end: 20170920
  5. HALOPERIDOL. [Concomitant]
     Active Substance: HALOPERIDOL
     Indication: PRODUCT USED FOR UNKNOWN INDICATION
     Dosage: 1.5 MILLIGRAM, UNK
     Route: 058
     Dates: start: 20170919, end: 20170920
  6. ZOLEDRONIC ACID [Concomitant]
     Active Substance: ZOLEDRONIC ACID
     Indication: PRODUCT USED FOR UNKNOWN INDICATION
     Dosage: PART OFANTICANCERTREATEMNT
     Route: 042
     Dates: start: 20151022, end: 20170713
  7. CALCICHEW [Concomitant]
     Active Substance: CALCIUM CARBONATE
     Indication: HYPOCALCAEMIA
     Dosage: CHEWABLE
     Route: 048
     Dates: start: 20151231, end: 20171219
  8. CHLORAMPHENICOL [Concomitant]
     Active Substance: CHLORAMPHENICOL
     Indication: CONJUNCTIVITIS
     Dosage: 1 PERCENT, UNK
     Route: 047
     Dates: start: 20170918, end: 20170920
  9. NYSTATIN. [Concomitant]
     Active Substance: NYSTATIN
     Indication: PRODUCT USED FOR UNKNOWN INDICATION
     Dosage: 10000 U LIQUID 03 SEP2017 } WHITECOATING ONTONGUE FUNGAL
     Route: 048
     Dates: start: 20170904, end: 20170919
  10. DEXAMETHASONE. [Concomitant]
     Active Substance: DEXAMETHASONE
     Indication: PRODUCT USED FOR UNKNOWN INDICATION
     Dosage: 2 MILLIGRAM, DAILY
     Route: 048
     Dates: start: 20170728, end: 20170803
  11. FILGRASTIM [Concomitant]
     Active Substance: FILGRASTIM
     Indication: PRODUCT USED FOR UNKNOWN INDICATION
     Dosage: QD FORSEVENDAYSFROMDAY 4 OFCYCLE
     Route: 058
     Dates: start: 20151210, end: 20160305
  12. HALOPERIDOL. [Concomitant]
     Active Substance: HALOPERIDOL
     Indication: DEPRESSION
     Dosage: 1.5 MILLIGRAM, BID
     Route: 048
     Dates: start: 20170810, end: 20170909
  13. MIDAZOLAM. [Concomitant]
     Active Substance: MIDAZOLAM
     Indication: PRODUCT USED FOR UNKNOWN INDICATION
     Dosage: PALLIATIVECARE
     Route: 058
     Dates: start: 20170918, end: 20170920
  14. PERTUZUMAB. [Suspect]
     Active Substance: PERTUZUMAB
     Dosage: LOADING DOSE
     Route: 042
     Dates: start: 20151023, end: 20151023
  15. DEXAMETHASONE. [Concomitant]
     Active Substance: DEXAMETHASONE
     Dosage: 8 MILLIGRAM, 2 DOSE
     Route: 048
     Dates: start: 20170803, end: 20170809
  16. FILGRASTIM [Concomitant]
     Active Substance: FILGRASTIM
     Indication: PRODUCT USED FOR UNKNOWN INDICATION
     Dosage: 300 MICROGRAM, DAILY
     Route: 058
     Dates: start: 20151120, end: 20151127
  17. MORPHINE SULPHATE [Concomitant]
     Active Substance: MORPHINE SULFATE
     Indication: PRODUCT USED FOR UNKNOWN INDICATION
     Dosage: PALLIATIVECARE
     Route: 058
     Dates: start: 20170918, end: 20170920
  18. ZOPICLONE [Concomitant]
     Active Substance: ZOPICLONE
     Indication: INSOMNIA
     Dosage: 3.75 MILLIGRAM, UNK
     Route: 048
     Dates: start: 20170825, end: 20170919
  19. PERTUZUMAB. [Suspect]
     Active Substance: PERTUZUMAB
     Indication: BREAST CANCER METASTATIC
     Dosage: LOADING DOSE
     Route: 042
     Dates: start: 20151023, end: 20151023
  20. HYDROCORTISONE. [Concomitant]
     Active Substance: HYDROCORTISONE
     Indication: PRODUCT USED FOR UNKNOWN INDICATION
     Dosage: 100 MILLIGRAM, TID
     Route: 042
     Dates: start: 20151022, end: 20160222
  21. LANSOPRAZOLE. [Concomitant]
     Active Substance: LANSOPRAZOLE
     Indication: PRODUCT USED FOR UNKNOWN INDICATION
     Dosage: 30 MILLIGRAM, DAILY
     Route: 048
     Dates: start: 20170728, end: 20170905
  22. MIGRALEVE [Concomitant]
     Active Substance: ACETAMINOPHEN\BUCLIZINE HYDROCHLORIDE\CODEINE
     Indication: MIGRAINE
     Dosage: UNK
     Route: 048
     Dates: start: 2017
  23. ONDANSETRON [Concomitant]
     Active Substance: ONDANSETRON
     Indication: NAUSEA
     Dosage: 8 MILLIGRAM, TID
     Route: 048
     Dates: start: 20170809, end: 20170812
  24. TRASTUZUMAB. [Suspect]
     Active Substance: TRASTUZUMAB
     Indication: BREAST CANCER METASTATIC
     Dosage: LOADING DOSE
     Route: 042
     Dates: start: 20151023, end: 20151023
  25. LETROZOLE. [Suspect]
     Active Substance: LETROZOLE
     Indication: BREAST CANCER METASTATIC
     Dosage: 2.5 MILLIGRAM, DAILY
     Route: 048
     Dates: start: 20160308, end: 20161123
  26. TRASTUZUMAB EMTANSINE [Suspect]
     Active Substance: ADO-TRASTUZUMAB EMTANSINE
     Indication: BREAST CANCER METASTATIC
     Dosage: 240 MILLIGRAM, UNK
     Route: 042
     Dates: start: 20161201
  27. CHLORPHENIRAMINE. [Concomitant]
     Active Substance: CHLORPHENIRAMINE
     Indication: PRODUCT USED FOR UNKNOWN INDICATION
     Dosage: 10 MILLIGRAM, UNK
     Route: 042
     Dates: start: 20151022, end: 20160222
  28. CLOTRIMAZOLE. [Concomitant]
     Active Substance: CLOTRIMAZOLE
     Indication: VULVOVAGINAL CANDIDIASIS
     Dosage: 1 PERCENT, TID
     Route: 061
     Dates: start: 20170918, end: 20170920
  29. DOMPERIDONE [Concomitant]
     Active Substance: DOMPERIDONE
     Indication: NAUSEA
     Dosage: 10 MILLIGRAM, TID
     Route: 048
     Dates: start: 20170810, end: 20170919
  30. MICONAZOLE. [Concomitant]
     Active Substance: MICONAZOLE
     Indication: PRODUCT USED FOR UNKNOWN INDICATION
     Dosage: 20 MILLIGRAM, UNK
     Route: 048
     Dates: start: 20170918, end: 20170920
  31. TRIMETHOPRIM. [Concomitant]
     Active Substance: TRIMETHOPRIM
     Indication: URINARY TRACT INFECTION
     Dosage: SUSPENSION LIQUID
     Route: 065
     Dates: start: 20170915, end: 20170919

REACTIONS (1)
  - Neuropathy peripheral [Recovered/Resolved]

NARRATIVE: CASE EVENT DATE: 201705
